FAERS Safety Report 10330682 (Version 1)
Quarter: 2014Q3

REPORT INFORMATION
  Report Type: Report from Study
  Country: BR (occurrence: BR)
  Receive Date: 20140722
  Receipt Date: 20140722
  Transmission Date: 20150326
  Serious: Yes (Death, Hospitalization, Other)
  Sender: FDA-Public Use
  Company Number: PHHY2014BR088771

PATIENT
  Sex: Female
  Weight: 69 kg

DRUGS (5)
  1. MEMANTINE HYDROCHLORIDE [Suspect]
     Active Substance: MEMANTINE HYDROCHLORIDE
     Indication: DEMENTIA ALZHEIMER^S TYPE
     Dosage: 1.5 DF, QD (HALF TABLET IN THE MORNING AND ONE TABLET AT NIGHT)
     Dates: start: 201404
  2. HOMEOPATICS NOS [Concomitant]
     Indication: HYPOTHYROIDISM
     Dosage: UNK UKN, UNK
  3. EXELON [Suspect]
     Active Substance: RIVASTIGMINE TARTRATE
     Indication: DEMENTIA ALZHEIMER^S TYPE
     Dosage: 1 DF, QHS
     Route: 062
     Dates: start: 201403
  4. SOMALGIN CARDIO [Concomitant]
     Active Substance: ASPIRIN\DIHYDROXYALUMINUM AMINOACETATE ANHYDROUS\MAGNESIUM CARBONATE
     Indication: PERIPHERAL VASCULAR DISORDER
     Dosage: 1 DF, QD (AT LUNCH)
  5. FLUOXETINE [Concomitant]
     Active Substance: FLUOXETINE\FLUOXETINE HYDROCHLORIDE
     Indication: ANXIETY
     Dosage: 1 DF, QD (IN THE MORNING)
     Dates: start: 201306

REACTIONS (6)
  - Weight increased [Unknown]
  - Bronchial disorder [Unknown]
  - Infection [Unknown]
  - Dyspnoea [Fatal]
  - Bronchopneumonia [Fatal]
  - Dementia Alzheimer^s type [Unknown]
